FAERS Safety Report 9944027 (Version 1)
Quarter: 2014Q1

REPORT INFORMATION
  Report Type: Spontaneous
  Country: US (occurrence: US)
  Receive Date: 20140303
  Receipt Date: 20140303
  Transmission Date: 20141002
  Serious: No
  Sender: FDA-Public Use
  Company Number: US-GILEAD-2012-0066311

PATIENT
  Sex: Female

DRUGS (2)
  1. RANEXA [Suspect]
     Indication: MYOCARDIAL ISCHAEMIA
     Dosage: 2000 MG, UNK
     Route: 048
     Dates: start: 20121115, end: 20121207
  2. RANEXA [Suspect]
     Dosage: 1000 MG, UNK
     Route: 048
     Dates: start: 201206, end: 20121114

REACTIONS (4)
  - Premature ageing [Recovering/Resolving]
  - Balance disorder [Recovering/Resolving]
  - Nausea [Recovering/Resolving]
  - Vomiting [Recovering/Resolving]
